FAERS Safety Report 4838253-8 (Version None)
Quarter: 2005Q4

REPORT INFORMATION
  Report Type: 
  Country: None (occurrence: None)
  Receive Date: 20051128
  Receipt Date: 20051116
  Transmission Date: 20060501
  Serious: Yes (Hospitalization)
  Sender: FDA-Public Use
  Company Number: NO-MERCK-0511NOR00032

PATIENT
  Age: 61 Year
  Sex: Female

DRUGS (8)
  1. VIOXX [Suspect]
     Indication: OSTEOARTHRITIS
     Route: 048
     Dates: start: 20001001, end: 20001201
  2. VIOXX [Suspect]
     Route: 048
     Dates: start: 20010323, end: 20040801
  3. VENLAFAXINE HYDROCHLORIDE [Concomitant]
     Indication: DEPRESSION
     Route: 048
     Dates: start: 20020101
  4. BUDESONIDE [Concomitant]
     Indication: ASTHMA
     Route: 048
     Dates: start: 20000101
  5. BUDESONIDE [Concomitant]
     Indication: CHRONIC OBSTRUCTIVE PULMONARY DISEASE
     Route: 048
     Dates: start: 20000101
  6. TERBUTALINE SULFATE [Concomitant]
     Indication: ASTHMA
     Route: 048
     Dates: start: 20000101
  7. TERBUTALINE SULFATE [Concomitant]
     Indication: CHRONIC OBSTRUCTIVE PULMONARY DISEASE
     Route: 048
     Dates: start: 20000101
  8. ACETAMINOPHEN AND CODEINE PHOSPHATE [Concomitant]
     Indication: PAIN
     Route: 048
     Dates: start: 20000101

REACTIONS (2)
  - CEREBRAL INFARCTION [None]
  - SENSORY DISTURBANCE [None]
